FAERS Safety Report 23578214 (Version 1)
Quarter: 2024Q1

REPORT INFORMATION
  Report Type: Spontaneous
  Country: JP (occurrence: JP)
  Receive Date: 20240229
  Receipt Date: 20240229
  Transmission Date: 20240409
  Serious: No
  Sender: FDA-Public Use
  Company Number: JP-MSD-M2024-06521

PATIENT
  Age: 73 Year
  Sex: Female

DRUGS (1)
  1. LAGEVRIO [Suspect]
     Active Substance: MOLNUPIRAVIR
     Indication: COVID-19 treatment
     Dosage: 800 MILLIGRAM, BID
     Route: 048
     Dates: start: 20240217, end: 20240218

REACTIONS (8)
  - Paraesthesia oral [Unknown]
  - Lip swelling [Unknown]
  - Periorbital swelling [Unknown]
  - Insomnia [Unknown]
  - Memory impairment [Unknown]
  - Pyrexia [Unknown]
  - Dizziness [Unknown]
  - Product use complaint [Unknown]

NARRATIVE: CASE EVENT DATE: 20240201
